FAERS Safety Report 23116328 (Version 3)
Quarter: 2023Q4

REPORT INFORMATION
  Report Type: Spontaneous
  Country: US (occurrence: US)
  Receive Date: 20231027
  Receipt Date: 20231109
  Transmission Date: 20240109
  Serious: Yes (Other)
  Sender: FDA-Public Use
  Company Number: US-SA-SAC20231023000144

PATIENT
  Age: 59 Year
  Sex: Male
  Weight: 114 kg

DRUGS (7)
  1. CERDELGA [Suspect]
     Active Substance: ELIGLUSTAT
     Indication: Gaucher^s disease
     Dosage: 84 MG, BID
     Route: 048
     Dates: start: 20220630
  2. IBUPROFEN [Concomitant]
     Active Substance: IBUPROFEN
     Dosage: UNK
  3. VITAMINS [Concomitant]
     Active Substance: VITAMINS
     Dosage: UNK
  4. LEVOTHYROXINE [Concomitant]
     Active Substance: LEVOTHYROXINE
     Dosage: UNK
  5. ALLOPURINOL [Concomitant]
     Active Substance: ALLOPURINOL
     Dosage: UNK
  6. OMEPRAZOLE [Concomitant]
     Active Substance: OMEPRAZOLE
     Dosage: UNK
  7. METFORMIN HYDROCHLORIDE [Concomitant]
     Active Substance: METFORMIN HYDROCHLORIDE
     Dosage: UNK

REACTIONS (1)
  - Colon cancer [Unknown]

NARRATIVE: CASE EVENT DATE: 20231016
